FAERS Safety Report 22517824 (Version 1)
Quarter: 2023Q2

REPORT INFORMATION
  Report Type: Spontaneous
  Country: JP (occurrence: JP)
  Receive Date: 20230604
  Receipt Date: 20230604
  Transmission Date: 20230722
  Serious: Yes (Other)
  Sender: FDA-Public Use
  Company Number: JP-DSJP-DSJ-2023-121586

PATIENT
  Age: 53 Year

DRUGS (3)
  1. DENOSUMAB [Suspect]
     Active Substance: DENOSUMAB
     Indication: Metastases to bone
     Dosage: 120 MG, ONCE EVERY 4 WK
     Route: 058
  2. FULVESTRANT [Concomitant]
     Active Substance: FULVESTRANT
     Dosage: UNK
     Route: 065
  3. PALBOCICLIB [Concomitant]
     Active Substance: PALBOCICLIB
     Dosage: UNK
     Route: 065

REACTIONS (4)
  - Seizure [Unknown]
  - Metastases to central nervous system [Unknown]
  - Lymphadenopathy [Unknown]
  - Metastases to liver [Unknown]
